FAERS Safety Report 8888693 (Version 1)
Quarter: 2012Q4

REPORT INFORMATION
  Report Type: 
  Country: US (occurrence: US)
  Receive Date: 20121106
  Receipt Date: 20121106
  Transmission Date: 20130627
  Serious: No
  Sender: FDA-Public Use
  Company Number: US-COVIDIEN/TYCO HEALTHCARE/MALLINCKRODT-T201203686

PATIENT
  Age: 59 Year
  Sex: Male

DRUGS (1)
  1. PENNSAID [Suspect]
     Indication: PAIN IN EXTREMITY
     Dosage: 10 Gtt, bid
     Route: 061
     Dates: start: 20121010, end: 20121010

REACTIONS (2)
  - Accidental exposure to product [Unknown]
  - Eye irritation [Not Recovered/Not Resolved]
